FAERS Safety Report 7035731-0 (Version None)
Quarter: 2010Q4

REPORT INFORMATION
  Report Type: 
  Country: None (occurrence: None)
  Receive Date: 20101007
  Receipt Date: 20101007
  Transmission Date: 20110411
  Serious: No
  Sender: FDA-Public Use
  Company Number: None

PATIENT
  Sex: Male

DRUGS (7)
  1. AMPYRA [Suspect]
     Dosage: AMPYRA 10MG TABLET
  2. LISINOPRIL [Concomitant]
  3. FLUOXETINE [Concomitant]
  4. VITAMIN D CAP [Concomitant]
  5. FISH OIL CAP [Concomitant]
  6. MULTIVITAMIN CAP [Concomitant]
  7. CALCIUM + D [Concomitant]

REACTIONS (2)
  - BLOOD TRIGLYCERIDES INCREASED [None]
  - CARDIOVASCULAR DISORDER [None]
